FAERS Safety Report 20663988 (Version 2)
Quarter: 2022Q2

REPORT INFORMATION
  Report Type: Spontaneous
  Country: FR (occurrence: FR)
  Receive Date: 20220401
  Receipt Date: 20220506
  Transmission Date: 20220721
  Serious: Yes (Hospitalization, Other)
  Sender: FDA-Public Use
  Company Number: None

PATIENT
  Age: 41 Year
  Sex: Female

DRUGS (4)
  1. BETAMETHASONE [Suspect]
     Active Substance: BETAMETHASONE
     Indication: Preterm premature rupture of membranes
     Dosage: 12 MG, 1 TIME DAILY
     Route: 030
     Dates: start: 20220223, end: 20220224
  2. ATOSIBAN [Suspect]
     Active Substance: ATOSIBAN
     Indication: Tocolysis
     Dosage: BOLUS INTRAVENOUS OVER 1 MIN 6.75 MG 75 MG INTRAVENOUS VIA INFUSION PUMP OVER 3 HOURS 75 MG INTRAVEN
     Route: 042
     Dates: start: 20220223, end: 20220225
  3. ATOSIBAN [Suspect]
     Active Substance: ATOSIBAN
     Dosage: 75 MG INJECTED INTRAVEINOUSLY WITH ELECTRIC SYRINGE DURING 3H
     Route: 042
     Dates: start: 20220223
  4. ATOSIBAN [Suspect]
     Active Substance: ATOSIBAN
     Dosage: 75 MG INJECTED INTRAVEINOUSLY DURING 45H
     Route: 042
     Dates: start: 20220225

REACTIONS (1)
  - Acute pulmonary oedema [Recovered/Resolved]

NARRATIVE: CASE EVENT DATE: 20220226
